FAERS Safety Report 4909926-3 (Version None)
Quarter: 2006Q1

REPORT INFORMATION
  Report Type: 
  Country: None (occurrence: None)
  Receive Date: 20060208
  Receipt Date: 20060202
  Transmission Date: 20060701
  Serious: Yes (Hospitalization)
  Sender: FDA-Public Use
  Company Number: 2006016937

PATIENT
  Age: 70 Year
  Sex: Male

DRUGS (3)
  1. FOSPHENYTOIN SODIUM [Suspect]
     Indication: ILL-DEFINED DISORDER
     Dosage: INTRAVENOUS
     Route: 042
     Dates: start: 20040823, end: 20040824
  2. ATENOLOL [Concomitant]
  3. PRAVASTATIN [Concomitant]

REACTIONS (2)
  - RASH ERYTHEMATOUS [None]
  - RHABDOMYOLYSIS [None]
